FAERS Safety Report 23884327 (Version 2)
Quarter: 2024Q3

REPORT INFORMATION
  Report Type: Spontaneous
  Country: CH (occurrence: CH)
  Receive Date: 20240522
  Receipt Date: 20240819
  Transmission Date: 20241017
  Serious: Yes (Death, Other)
  Sender: BRISTOL MYERS SQUIBB
  Company Number: CH-BRISTOL-MYERS SQUIBB COMPANY-2024-078964

PATIENT

DRUGS (3)
  1. OPDIVO [Suspect]
     Active Substance: NIVOLUMAB
     Indication: Oesophageal adenocarcinoma
  2. FLUOROURACIL LABATEC [Concomitant]
     Indication: Product used for unknown indication
  3. OXALIPLATIN [Concomitant]
     Active Substance: OXALIPLATIN
     Indication: Product used for unknown indication

REACTIONS (1)
  - Death [Fatal]
